FAERS Safety Report 5334269-6 (Version None)
Quarter: 2007Q2

REPORT INFORMATION
  Report Type: 
  Country: None (occurrence: None)
  Receive Date: 20070525
  Receipt Date: 20070514
  Transmission Date: 20071010
  Serious: Yes (Hospitalization)
  Sender: FDA-Public Use
  Company Number: PHEH2007US07206

PATIENT
  Age: 93 Year
  Sex: Female

DRUGS (14)
  1. ZOLEDRONATE [Suspect]
     Dosage: 2 MG, ONCE/SINGLE
     Dates: start: 20070425
  2. DIGOXIN [Concomitant]
     Dosage: 0.125 UNK, QD
  3. ENALAPRIL [Concomitant]
     Dosage: 2.5 MG, BID
  4. TOPROL-XL [Concomitant]
     Dosage: 25 MG, QD
  5. LASIX [Concomitant]
     Dosage: 20 MG, QD
  6. ZOCOR [Concomitant]
     Dosage: 40 MG, UNK
  7. EFFEXOR [Concomitant]
     Dosage: 25 MG, UNK
  8. COD-LIVER OIL [Concomitant]
  9. OMEPRAZOLE [Concomitant]
     Dosage: 20 MG, UNK
  10. BETAMETHASONE [Concomitant]
     Dosage: 0.05 %, UNK
  11. TYLENOL [Concomitant]
  12. ENTERIC ASPIRIN [Concomitant]
  13. RISPERDAL [Concomitant]
  14. DETROL [Concomitant]

REACTIONS (6)
  - BLOOD ALKALINE PHOSPHATASE INCREASED [None]
  - BLOOD CALCIUM DECREASED [None]
  - BLOOD PARATHYROID HORMONE INCREASED [None]
  - BLOOD PHOSPHORUS DECREASED [None]
  - OSTEOCALCIN INCREASED [None]
  - VITAMIN D DECREASED [None]
